FAERS Safety Report 5471484-5 (Version None)
Quarter: 2007Q3

REPORT INFORMATION
  Report Type: 
  Country: None (occurrence: None)
  Receive Date: 20070928
  Receipt Date: 20061110
  Transmission Date: 20080115
  Serious: Yes (Hospitalization)
  Sender: FDA-Public Use
  Company Number: US-BRISTOL-MYERS SQUIBB COMPANY-13576756

PATIENT
  Age: 53 Year
  Sex: Female

DRUGS (1)
  1. DEFINITY [Suspect]

REACTIONS (3)
  - BACK PAIN [None]
  - CHEST PAIN [None]
  - POST PROCEDURAL COMPLICATION [None]
